FAERS Safety Report 8448572-4 (Version None)
Quarter: 2012Q2

REPORT INFORMATION
  Report Type: 
  Country: None (occurrence: None)
  Receive Date: 20120619
  Receipt Date: 20120612
  Transmission Date: 20120825
  Serious: Yes (Hospitalization)
  Sender: FDA-Public Use
  Company Number: FR-ROCHE-1077955

PATIENT
  Sex: Male

DRUGS (10)
  1. OXYBUTYNIN [Suspect]
     Indication: PRODUCT USED FOR UNKNOWN INDICATION
     Route: 048
     Dates: start: 20100722, end: 20120417
  2. PERMIXON [Concomitant]
     Route: 048
  3. ADANCOR [Concomitant]
     Route: 048
  4. CLONAZEPAM [Suspect]
     Indication: PRODUCT USED FOR UNKNOWN INDICATION
     Dosage: FORM: DROPS
     Route: 048
     Dates: start: 20110628, end: 20120426
  5. PRAVASTATIN SODIUM [Concomitant]
     Route: 048
  6. ATENOLOL [Concomitant]
     Route: 048
  7. RABEPRAZOLE SODIUM [Concomitant]
     Route: 048
  8. ASPIRIN [Concomitant]
     Route: 048
  9. CETIRIZINE [Concomitant]
     Route: 048
  10. LANTUS [Concomitant]
     Route: 058

REACTIONS (3)
  - VOLVULUS [None]
  - MEGACOLON [None]
  - CONSTIPATION [None]
